FAERS Safety Report 6302839-4 (Version None)
Quarter: 2009Q3

REPORT INFORMATION
  Report Type: 
  Country: None (occurrence: None)
  Receive Date: 20090810
  Receipt Date: 20090804
  Transmission Date: 20100115
  Serious: Yes (Hospitalization)
  Sender: FDA-Public Use
  Company Number: US-KINGPHARMUSA00001-K200900756

PATIENT
  Age: 49 Year
  Sex: Female
  Weight: 114.29 kg

DRUGS (11)
  1. SEPTRA [Suspect]
     Indication: CELLULITIS
     Dosage: 160/800 MG, BID
     Route: 048
     Dates: start: 20090512, end: 20090521
  2. LIPITOR [Suspect]
     Indication: HYPERLIPIDAEMIA
     Dosage: 10 MG, QD
     Route: 048
     Dates: start: 20080725, end: 20090521
  3. LIPITOR [Suspect]
     Dosage: UNK
     Dates: start: 19940101, end: 20090725
  4. VALPROIC ACID [Concomitant]
     Dosage: 1500 MG, QD
     Route: 048
     Dates: start: 20040101, end: 20090501
  5. VALPROIC ACID [Concomitant]
     Dosage: UNK
     Route: 048
     Dates: start: 20090601
  6. RISPERDAL [Concomitant]
     Dosage: 3 MG, BID
  7. FAMOTIDINE [Concomitant]
     Dosage: 20 MG, BID
  8. MULTI-VITAMINS [Concomitant]
     Dosage: UNK
  9. ACETAMINOPHEN [Concomitant]
     Dosage: 650 MG, PRN
  10. CALCIUM + VITAMIN D [Concomitant]
     Dosage: UNK
  11. ERYTHROMYCIN [Concomitant]
     Dosage: UNK
     Route: 061

REACTIONS (10)
  - ALANINE AMINOTRANSFERASE INCREASED [None]
  - ASPARTATE AMINOTRANSFERASE INCREASED [None]
  - BLOOD CREATINE PHOSPHOKINASE INCREASED [None]
  - CELLULITIS [None]
  - CHEST PAIN [None]
  - CHILLS [None]
  - DRUG INTERACTION [None]
  - MYALGIA [None]
  - PYREXIA [None]
  - RHABDOMYOLYSIS [None]
